FAERS Safety Report 6288229-1 (Version None)
Quarter: 2009Q3

REPORT INFORMATION
  Report Type: 
  Country: None (occurrence: None)
  Receive Date: 20090729
  Receipt Date: 20090727
  Transmission Date: 20100115
  Serious: Yes (Hospitalization)
  Sender: FDA-Public Use
  Company Number: US-ROXANE LABORATORIES, INC.-2009-RO-00745RO

PATIENT

DRUGS (1)
  1. DIGOXIN [Suspect]

REACTIONS (2)
  - CARDIAC FAILURE CONGESTIVE [None]
  - THERAPEUTIC AGENT TOXICITY [None]
